FAERS Safety Report 12669391 (Version 1)
Quarter: 2016Q3

REPORT INFORMATION
  Report Type: Spontaneous
  Country: FR (occurrence: FR)
  Receive Date: 20160819
  Receipt Date: 20160819
  Transmission Date: 20161109
  Serious: Yes (Other)
  Sender: FDA-Public Use
  Company Number: FR-TEVA-680293ISR

PATIENT
  Age: 63 Year
  Sex: Female

DRUGS (1)
  1. VINCRISTINE TEVA 0.1 % (1 MG/ 1ML) [Suspect]
     Active Substance: VINCRISTINE
     Indication: T-CELL LYMPHOMA
     Dosage: 2 MILLIGRAM DAILY; CHOP PROTOCOL - FIRST COURSE DAY 1
     Route: 042
     Dates: start: 20160715, end: 20160715

REACTIONS (3)
  - Administration site oedema [Not Recovered/Not Resolved]
  - Extravasation [Not Recovered/Not Resolved]
  - Injection site joint pain [Recovered/Resolved]

NARRATIVE: CASE EVENT DATE: 20160715
